FAERS Safety Report 4273090-7 (Version None)
Quarter: 2004Q1

REPORT INFORMATION
  Report Type: 
  Country: None (occurrence: None)
  Receive Date: 20040114
  Receipt Date: 20040105
  Transmission Date: 20041129
  Serious: Yes (Death, Congenital Anomaly)
  Sender: FDA-Public Use
  Company Number: 2003-BP-09509BP (4)

PATIENT
  Age: 0 Day
  Sex: Female

DRUGS (4)
  1. VIRAMUNE [Suspect]
     Indication: HIV INFECTION
     Dosage: SEE IMAGE
     Route: 015
     Dates: start: 20021029, end: 20021111
  2. VIRAMUNE [Suspect]
     Indication: HIV INFECTION
     Dosage: SEE IMAGE
     Route: 015
     Dates: start: 20021112
  3. COMBIVIR [Suspect]
     Indication: HIV INFECTION
     Dosage: 2 DAILY, IU
     Route: 015
     Dates: start: 20021029
  4. FOLATE SUPPLEMENTS [Concomitant]

REACTIONS (14)
  - ABDOMINAL WALL DISORDER [None]
  - CHORIOAMNIONITIS [None]
  - FOETAL DISORDER [None]
  - FOETAL DISTRESS SYNDROME [None]
  - GASTRIC DISORDER [None]
  - HYDROPS FOETALIS [None]
  - INFARCTION [None]
  - INTRA-UTERINE DEATH [None]
  - MATERNAL DRUGS AFFECTING FOETUS [None]
  - OEDEMA [None]
  - PLACENTAL DISORDER [None]
  - PLACENTAL NECROSIS [None]
  - SKULL MALFORMATION [None]
  - UMBILICAL CORD ABNORMALITY [None]
